FAERS Safety Report 8343053-0 (Version None)
Quarter: 2012Q2

REPORT INFORMATION
  Report Type: 
  Country: None (occurrence: None)
  Receive Date: 20120508
  Receipt Date: 20120503
  Transmission Date: 20120825
  Serious: Yes (Other)
  Sender: FDA-Public Use
  Company Number: PHHY2012BE038544

PATIENT
  Age: 83 Year
  Sex: Female

DRUGS (6)
  1. MICARDIS [Concomitant]
     Indication: HYPERTENSION
     Dosage: UNK
  2. EMCORETIC [Concomitant]
     Dosage: UNK
  3. MIACALCIN [Suspect]
     Indication: COMPLEX REGIONAL PAIN SYNDROME
     Dosage: 100 IU,DAILY
     Dates: start: 20120430
  4. MIACALCIN [Suspect]
     Dosage: 50 IU, DAILY
     Dates: start: 20120503
  5. GLURENORM [Concomitant]
     Dosage: UNK
  6. ASPIRIN [Concomitant]
     Dosage: UNK

REACTIONS (4)
  - ASTHENIA [None]
  - FATIGUE [None]
  - HYPOTENSION [None]
  - HEADACHE [None]
